FAERS Safety Report 16463010 (Version 3)
Quarter: 2019Q3

REPORT INFORMATION
  Report Type: Spontaneous
  Country: KW (occurrence: KW)
  Receive Date: 20190621
  Receipt Date: 20190722
  Transmission Date: 20191004
  Serious: Yes (Death, Hospitalization, Other)
  Sender: FDA-Public Use
  Company Number: KW-SA-2019SA167688

PATIENT
  Age: 16 Year
  Sex: Male
  Weight: 33 kg

DRUGS (1)
  1. ALDURAZYME [Suspect]
     Active Substance: LARONIDASE
     Indication: MUCOPOLYSACCHARIDOSIS I
     Dosage: 6 DF, QW (PORT-A-CATH)
     Route: 041
     Dates: start: 2008

REACTIONS (14)
  - Haemorrhage [Unknown]
  - Upper airway obstruction [Unknown]
  - Chest discomfort [Unknown]
  - Renal failure [Fatal]
  - Asphyxia [Unknown]
  - Vascular procedure complication [Unknown]
  - Disease progression [Unknown]
  - Multiple organ dysfunction syndrome [Fatal]
  - Cardiac arrest [Recovered/Resolved]
  - Apnoea [Unknown]
  - Sleep apnoea syndrome [Unknown]
  - Respiratory complication associated with device [Fatal]
  - Sepsis [Fatal]
  - Hernia [Unknown]

NARRATIVE: CASE EVENT DATE: 2009
